FAERS Safety Report 9265719 (Version 1)
Quarter: 2013Q2

REPORT INFORMATION
  Report Type: Spontaneous
  Country: US (occurrence: US)
  Receive Date: 20130501
  Receipt Date: 20130501
  Transmission Date: 20140414
  Serious: No
  Sender: FDA-Public Use
  Company Number: US-ASTRAZENECA-2013SE22563

PATIENT
  Age: 26 Year
  Sex: Female

DRUGS (3)
  1. SEROQUEL [Suspect]
     Indication: SLEEP DISORDER
     Route: 048
  2. LAMICTAL [Concomitant]
  3. ABILIFY [Concomitant]

REACTIONS (2)
  - Hypothyroidism [Unknown]
  - Off label use [Unknown]
